FAERS Safety Report 5944067-8 (Version None)
Quarter: 2008Q4

REPORT INFORMATION
  Report Type: 
  Country: None (occurrence: None)
  Receive Date: 20081106
  Receipt Date: 20081029
  Transmission Date: 20090506
  Serious: Yes (Hospitalization)
  Sender: FDA-Public Use
  Company Number: NL-ABBOTT-08P-114-0485121-00

PATIENT
  Sex: Male
  Weight: 88 kg

DRUGS (4)
  1. NIASPAN [Suspect]
     Indication: LIPOPROTEIN (A) ABNORMAL
     Dates: start: 20041001
  2. NIASPAN [Suspect]
     Indication: BLOOD CHOLESTEROL INCREASED
  3. ACETYLSALICYLATE CALCIUM [Concomitant]
     Indication: HAEMODILUTION
     Dates: start: 20030101
  4. SIMVASTATIN [Concomitant]
     Indication: DRUG USE FOR UNKNOWN INDICATION
     Dates: start: 20030101

REACTIONS (3)
  - ATRIAL FIBRILLATION [None]
  - CORONARY ARTERY OCCLUSION [None]
  - HOT FLUSH [None]
